FAERS Safety Report 9653795 (Version 1)
Quarter: 2013Q4

REPORT INFORMATION
  Report Type: Spontaneous
  Country: US (occurrence: US)
  Receive Date: 20131029
  Receipt Date: 20131029
  Transmission Date: 20140711
  Serious: No
  Sender: FDA-Public Use
  Company Number: US-BIOGENIDEC-2013BI081036

PATIENT
  Age: 64 Year
  Sex: Female

DRUGS (9)
  1. TECFIDERA [Suspect]
     Indication: MULTIPLE SCLEROSIS
     Route: 048
     Dates: start: 20130725
  2. TECFIDERA [Suspect]
     Indication: MULTIPLE SCLEROSIS
     Route: 048
  3. COZAAR [Concomitant]
  4. LIPITOR [Concomitant]
  5. HYDROCHLOROTHIAZIDE [Concomitant]
  6. FLUOXETINE HCL [Concomitant]
  7. ZANTAC [Concomitant]
  8. LEVOTHYROXINE [Concomitant]
     Dosage: DOSE UNIT:50
  9. BENADRYL [Concomitant]

REACTIONS (4)
  - Diarrhoea [Not Recovered/Not Resolved]
  - Flushing [Unknown]
  - Rash pruritic [Not Recovered/Not Resolved]
  - Abdominal pain upper [Unknown]
